FAERS Safety Report 7109062-4 (Version None)
Quarter: 2010Q4

REPORT INFORMATION
  Report Type: 
  Country: None (occurrence: None)
  Receive Date: 20101117
  Receipt Date: 20101108
  Transmission Date: 20110411
  Serious: Yes (Other)
  Sender: FDA-Public Use
  Company Number: US-US-EMD SERONO, INC.-7026266

PATIENT
  Sex: Female
  Weight: 67 kg

DRUGS (2)
  1. REBIF [Suspect]
     Indication: MULTIPLE SCLEROSIS
     Route: 058
     Dates: start: 20091123, end: 20101103
  2. UNSPECIFIED MEDICATION [Concomitant]

REACTIONS (4)
  - DIZZINESS [None]
  - LYME DISEASE [None]
  - MULTIPLE SCLEROSIS RELAPSE [None]
  - RHEUMATOID ARTHRITIS [None]
